FAERS Safety Report 17429833 (Version 1)
Quarter: 2020Q1

REPORT INFORMATION
  Report Type: Spontaneous
  Country: US (occurrence: US)
  Receive Date: 20200203
  Receipt Date: 20200203
  Transmission Date: 20200409
  Serious: No
  Sender: FDA-Public Use
  Company Number: None

PATIENT
  Age: 41 Year
  Sex: Female

DRUGS (15)
  1. HUMIRA [Suspect]
     Active Substance: ADALIMUMAB
     Indication: HIDRADENITIS
     Route: 058
     Dates: start: 20190110
  2. HYDROCO/APAP [Concomitant]
     Active Substance: ACETAMINOPHEN\HYDROCODONE
  3. GABAPENTIN. [Concomitant]
     Active Substance: GABAPENTIN
  4. DULCOLAX NOS [Concomitant]
     Active Substance: BISACODYL OR DOCUSATE SODIUM
  5. IRON [Concomitant]
     Active Substance: IRON
  6. METHOTREXATE. [Concomitant]
     Active Substance: METHOTREXATE
  7. SPIRONOLACT [Concomitant]
     Active Substance: SPIRONOLACTONE
  8. DOK [Concomitant]
     Active Substance: DOCUSATE SODIUM
  9. FOLIC ACID. [Concomitant]
     Active Substance: FOLIC ACID
  10. NARCAN [Concomitant]
     Active Substance: NALOXONE HYDROCHLORIDE
  11. NORCO [Concomitant]
     Active Substance: ACETAMINOPHEN\HYDROCODONE BITARTRATE
  12. ONDANSETRON [Concomitant]
     Active Substance: ONDANSETRON
  13. PANTOPRAZOLE [Concomitant]
     Active Substance: PANTOPRAZOLE
  14. RANITIDINE. [Concomitant]
     Active Substance: RANITIDINE
  15. METRONIDAZOL [Concomitant]
     Active Substance: METRONIDAZOLE

REACTIONS (2)
  - Condition aggravated [None]
  - Swelling [None]

NARRATIVE: CASE EVENT DATE: 20200127
